FAERS Safety Report 14486775 (Version 1)
Quarter: 2018Q1

REPORT INFORMATION
  Report Type: Spontaneous
  Country: PL (occurrence: PL)
  Receive Date: 20180205
  Receipt Date: 20180205
  Transmission Date: 20180509
  Serious: Yes (Other)
  Sender: FDA-Public Use
  Company Number: PL-JNJFOC-20180201284

PATIENT
  Age: 36 Year
  Sex: Male

DRUGS (5)
  1. VINCRISTINE [Suspect]
     Active Substance: VINCRISTINE
     Indication: NON-HODGKIN^S LYMPHOMA
     Dosage: 8 CYCLES OF CHEMOTHERAPY ADMINISTERED EVERY 21 DAYS FOR 4.5 MONTHS
     Route: 042
  2. METHOTREXATE. [Suspect]
     Active Substance: METHOTREXATE
     Indication: NON-HODGKIN^S LYMPHOMA
     Dosage: 8 CYCLES OF CHEMOTHERAPY ADMINISTERED EVERY 21 DAYS FOR 4.5 MONTHS
     Route: 042
  3. RITUXIMAB. [Suspect]
     Active Substance: RITUXIMAB
     Indication: NON-HODGKIN^S LYMPHOMA
     Dosage: 8 CYCLES OF CHEMOTHERAPY ADMINISTERED EVERY 21 DAYS FOR 4.5 MONTHS
     Route: 042
  4. CYCLOPHOSPHAMIDE. [Suspect]
     Active Substance: CYCLOPHOSPHAMIDE
     Indication: DIFFUSE LARGE B-CELL LYMPHOMA
     Route: 042
  5. DOXORUBICIN HYDROCHLORIDE. [Suspect]
     Active Substance: DOXORUBICIN HYDROCHLORIDE
     Indication: NON-HODGKIN^S LYMPHOMA
     Dosage: 8 CYCLES OF CHEMOTHERAPY ADMINISTERED EVERY 21 DAYS FOR 4.5 MONTHS
     Route: 042

REACTIONS (3)
  - Polyneuropathy [Unknown]
  - Off label use [Unknown]
  - Product use in unapproved indication [Unknown]
